FAERS Safety Report 5760851-8 (Version None)
Quarter: 2008Q2

REPORT INFORMATION
  Report Type: 
  Country: None (occurrence: None)
  Receive Date: 20080606
  Receipt Date: 20080603
  Transmission Date: 20081010
  Serious: Yes (Hospitalization)
  Sender: FDA-Public Use
  Company Number: US-KINGPHARMUSA00001-K200800626

PATIENT

DRUGS (13)
  1. ALTACE [Suspect]
     Indication: ISCHAEMIC CARDIOMYOPATHY
     Dosage: 10 MG, QD
     Route: 048
  2. AMLOR [Suspect]
     Indication: ISCHAEMIC CARDIOMYOPATHY
     Dosage: 10 MG, QD
     Route: 048
  3. AMLOR [Suspect]
     Dosage: 5 MG, QD
     Route: 048
  4. NITRODERM [Suspect]
     Dosage: 10 MG, QD
     Route: 062
  5. LASILIX                            /00032601/ [Concomitant]
     Route: 048
  6. TARDYFERON                         /00023503/ [Concomitant]
     Route: 048
  7. IMOVANE [Concomitant]
     Route: 048
  8. XANAX [Concomitant]
  9. PLAVIX [Concomitant]
     Route: 048
  10. TOPALGIC LP [Concomitant]
     Route: 048
  11. ACUPAN [Concomitant]
  12. CACIT D3 [Concomitant]
  13. DAFALGAN                           /00020001/ [Concomitant]

REACTIONS (3)
  - DRUG INTERACTION [None]
  - FALL [None]
  - ORTHOSTATIC HYPOTENSION [None]
